FAERS Safety Report 16540323 (Version 1)
Quarter: 2019Q3

REPORT INFORMATION
  Report Type: Spontaneous
  Country: US (occurrence: US)
  Receive Date: 20190703
  Receipt Date: 20190703
  Transmission Date: 20191004
  Serious: Yes (Hospitalization)
  Sender: FDA-Public Use
  Company Number: None

PATIENT
  Age: 23 Year
  Sex: Female

DRUGS (1)
  1. MIRENA [Suspect]
     Active Substance: LEVONORGESTREL
     Dates: start: 20150101, end: 20190101

REACTIONS (3)
  - Pelvic pain [None]
  - Complication associated with device [None]
  - Device breakage [None]

NARRATIVE: CASE EVENT DATE: 20190101
